FAERS Safety Report 25379125 (Version 1)
Quarter: 2025Q2

REPORT INFORMATION
  Report Type: Spontaneous
  Country: CN (occurrence: CN)
  Receive Date: 20250530
  Receipt Date: 20250530
  Transmission Date: 20250716
  Serious: Yes (Other)
  Sender: PFIZER
  Company Number: CN-PFIZER INC-PV202500064518

PATIENT
  Age: 77 Year
  Sex: Male
  Weight: 64 kg

DRUGS (3)
  1. TIGECYCLINE [Suspect]
     Active Substance: TIGECYCLINE
     Indication: Pneumonia
     Dosage: 100 MG, 1X/DAY
     Route: 041
     Dates: start: 20250505, end: 20250516
  2. POLYMYXIN B [Concomitant]
     Active Substance: POLYMYXIN B
     Indication: Pneumonia
     Dates: start: 20250505, end: 202505
  3. POLYMYXIN E1 [Concomitant]
     Indication: Pneumonia
     Dates: start: 20250505, end: 202505

REACTIONS (2)
  - Pyrexia [Recovering/Resolving]
  - Blood fibrinogen decreased [Recovering/Resolving]

NARRATIVE: CASE EVENT DATE: 20250516
